FAERS Safety Report 4815500-X (Version None)
Quarter: 2005Q4

REPORT INFORMATION
  Report Type: 
  Country: None (occurrence: None)
  Receive Date: 20051027
  Receipt Date: 20051013
  Transmission Date: 20060501
  Serious: Yes (Hospitalization)
  Sender: FDA-Public Use
  Company Number: 02100-JPN-05-0497

PATIENT
  Age: 88 Year
  Sex: Female

DRUGS (2)
  1. CILOSTAZOL [Suspect]
     Indication: CEREBRAL INFARCTION
     Dosage: ORAL
     Route: 048
  2. SUCRALFATE [Concomitant]

REACTIONS (1)
  - PANCYTOPENIA [None]
